FAERS Safety Report 6689915-1 (Version None)
Quarter: 2010Q2

REPORT INFORMATION
  Report Type: 
  Country: None (occurrence: None)
  Receive Date: 20100421
  Receipt Date: 20100415
  Transmission Date: 20101027
  Serious: Yes (Other)
  Sender: FDA-Public Use
  Company Number: CHPA2010US06736

PATIENT
  Age: 82 Year
  Sex: Female

DRUGS (2)
  1. VOLTAREN [Suspect]
     Indication: ARTHRITIS
     Dosage: UNK, UNK
     Route: 061
  2. IBUPROFEN [Concomitant]
     Indication: PAIN

REACTIONS (8)
  - BURNS SECOND DEGREE [None]
  - DRUG ADMINISTERED AT INAPPROPRIATE SITE [None]
  - ERYTHEMA [None]
  - IMPAIRED HEALING [None]
  - OFF LABEL USE [None]
  - PAIN OF SKIN [None]
  - SKIN EXFOLIATION [None]
  - WRONG TECHNIQUE IN DRUG USAGE PROCESS [None]
